FAERS Safety Report 22596849 (Version 1)
Quarter: 2023Q2

REPORT INFORMATION
  Report Type: Spontaneous
  Country: US (occurrence: US)
  Receive Date: 20230613
  Receipt Date: 20230613
  Transmission Date: 20230721
  Serious: No
  Sender: FDA-Public Use
  Company Number: US-BoehringerIngelheim-2023-BI-243669

PATIENT
  Age: 71 Year
  Sex: Female

DRUGS (1)
  1. JARDIANCE [Suspect]
     Active Substance: EMPAGLIFLOZIN
     Indication: Type 2 diabetes mellitus
     Dates: start: 202303

REACTIONS (7)
  - Arthritis [Not Recovered/Not Resolved]
  - Asthenia [Unknown]
  - Vulvovaginal discomfort [Recovered/Resolved]
  - Peripheral swelling [Unknown]
  - Muscle twitching [Recovered/Resolved]
  - Pruritus [Unknown]
  - Arthralgia [Not Recovered/Not Resolved]

NARRATIVE: CASE EVENT DATE: 20230401
